FAERS Safety Report 8485645-4 (Version None)
Quarter: 2012Q3

REPORT INFORMATION
  Report Type: 
  Country: None (occurrence: None)
  Receive Date: 20120703
  Receipt Date: 20120626
  Transmission Date: 20120928
  Serious: Yes (Other)
  Sender: FDA-Public Use
  Company Number: US-UCBSA-060635

PATIENT
  Age: 46 Year
  Sex: Female

DRUGS (1)
  1. CIMZIA [Suspect]
     Indication: RHEUMATOID ARTHRITIS
     Dosage: AT WEEK 0
     Route: 058
     Dates: start: 20120625, end: 20120625

REACTIONS (3)
  - PHARYNGEAL OEDEMA [None]
  - DYSPHONIA [None]
  - HYPOAESTHESIA ORAL [None]
